FAERS Safety Report 6373119-6 (Version None)
Quarter: 2009Q3

REPORT INFORMATION
  Report Type: 
  Country: None (occurrence: None)
  Receive Date: 20090924
  Receipt Date: 20090611
  Transmission Date: 20100115
  Serious: Yes (Other)
  Sender: FDA-Public Use
  Company Number: US-ASTRAZENECA-2009UW03063

PATIENT
  Sex: Male
  Weight: 77.1 kg

DRUGS (4)
  1. SEROQUEL [Suspect]
     Indication: DEPRESSION
     Dosage: 100 TO 300 MG
     Route: 048
     Dates: start: 20040101, end: 20060101
  2. SEROQUEL [Suspect]
     Indication: ANXIETY
     Dosage: 100 TO 300 MG
     Route: 048
     Dates: start: 20040101, end: 20060101
  3. ABILIFY [Concomitant]
  4. ZYPREXA [Concomitant]

REACTIONS (1)
  - PANCREATITIS [None]
